FAERS Safety Report 20004096 (Version 2)
Quarter: 2023Q1

REPORT INFORMATION
  Report Type: Spontaneous
  Country: US (occurrence: US)
  Receive Date: 20211027
  Receipt Date: 20230213
  Transmission Date: 20230417
  Serious: No
  Sender: FDA-Public Use
  Company Number: US-PFIZER INC-202101246701

PATIENT
  Age: 42 Year
  Sex: Male

DRUGS (2)
  1. LORBRENA [Suspect]
     Active Substance: LORLATINIB
     Indication: Non-small cell lung cancer stage IV
     Dosage: 100 MG
  2. ALECTINIB [Suspect]
     Active Substance: ALECTINIB
     Dosage: UNK

REACTIONS (1)
  - Neoplasm progression [Unknown]
